FAERS Safety Report 16969532 (Version 1)
Quarter: 2019Q4

REPORT INFORMATION
  Report Type: Spontaneous
  Country: US (occurrence: US)
  Receive Date: 20190911
  Receipt Date: 20190911
  Transmission Date: 20200122
  Serious: No
  Sender: FDA-Public Use
  Company Number: None

PATIENT
  Age: 61 Year
  Sex: Female

DRUGS (1)
  1. COSENTYX [Suspect]
     Active Substance: SECUKINUMAB
     Indication: PSORIASIS
     Route: 058
     Dates: start: 2017

REACTIONS (4)
  - Cough [None]
  - Tonsillar hypertrophy [None]
  - Nasopharyngitis [None]
  - Pyrexia [None]

NARRATIVE: CASE EVENT DATE: 20190911
